FAERS Safety Report 25958006 (Version 1)
Quarter: 2025Q4

REPORT INFORMATION
  Report Type: Spontaneous
  Country: EU (occurrence: EU)
  Receive Date: 20251024
  Receipt Date: 20251024
  Transmission Date: 20260118
  Serious: Yes (Other)
  Sender: DR REDDYS
  Company Number: None

PATIENT
  Age: 30 Year
  Sex: Female
  Weight: 56 kg

DRUGS (9)
  1. PREGABALIN [Suspect]
     Active Substance: PREGABALIN
     Indication: Neuralgia
     Route: 048
     Dates: start: 202307, end: 202404
  2. PREGABALIN [Suspect]
     Active Substance: PREGABALIN
     Indication: Epicondylitis
  3. LAMOTRIGINE [Suspect]
     Active Substance: LAMOTRIGINE
     Indication: Generalised tonic-clonic seizure
     Dosage: SLOWLY INCREASED; 1ST TRIMESTER: 400 MG/D (250-0-150), IN THE FURTHER COURSE INCREASE TO 1200 MG/D (
     Route: 048
     Dates: start: 202307, end: 202404
  4. Folsaure-ratiopharm [Concomitant]
     Indication: Vitamin supplementation
     Route: 048
     Dates: start: 202310, end: 202404
  5. PERTUSSIS VACCINE [Concomitant]
     Active Substance: PERTUSSIS VACCINE
     Indication: Immunisation
     Dosage: GW UNKNOWN
     Route: 030
  6. TRAMADOL [Concomitant]
     Active Substance: TRAMADOL
     Indication: Neuralgia
     Dosage: APPROXIMATELY 2-3X/MONTH
     Route: 048
     Dates: start: 202307, end: 202404
  7. TRAMADOL [Concomitant]
     Active Substance: TRAMADOL
     Indication: Epicondylitis
  8. ACETAMINOPHEN [Concomitant]
     Active Substance: ACETAMINOPHEN
     Indication: Product used for unknown indication
     Dosage: MIN. 2X/WK
     Route: 048
  9. SUMATRIPTAN [Concomitant]
     Active Substance: SUMATRIPTAN
     Indication: Migraine
     Route: 048

REACTIONS (1)
  - Exposure during pregnancy [Unknown]
